FAERS Safety Report 9652156 (Version 1)
Quarter: 2013Q4

REPORT INFORMATION
  Report Type: Spontaneous
  Country: IT (occurrence: None)
  Receive Date: 20131025
  Receipt Date: 20131025
  Transmission Date: 20140711
  Serious: Yes (Hospitalization)
  Sender: FDA-Public Use
  Company Number: 2013P1020372

PATIENT
  Age: 56 Year
  Sex: Female

DRUGS (3)
  1. PLAQUENIL [Suspect]
     Indication: RHEUMATOID ARTHRITIS
     Route: 048
     Dates: start: 20130101, end: 20130730
  2. ESOPRAL (ESOMEPRAZOLE) [Concomitant]
  3. MEDROL (METHYLPREDNISOLONE) [Concomitant]

REACTIONS (2)
  - Bundle branch block right [None]
  - Reye^s syndrome [None]
